FAERS Safety Report 8811599 (Version 1)
Quarter: 2012Q4

REPORT INFORMATION
  Report Type: 
  Country: US (occurrence: US)
  Receive Date: 20120927
  Receipt Date: 20120927
  Transmission Date: 20130627
  Serious: Yes (Hospitalization)
  Sender: FDA-Public Use
  Company Number: PHHO2004US13831

PATIENT
  Age: 48 Year
  Sex: Female
  Weight: 77.7 kg

DRUGS (6)
  1. ALISKIREN [Suspect]
     Indication: ESSENTIAL HYPERTENSION
     Dosage: 300 mg, QD
     Route: 048
     Dates: start: 20040708, end: 20040916
  2. HYDRODIURIL [Concomitant]
     Indication: ESSENTIAL HYPERTENSION
     Dosage: 12.5 mg, QD
     Route: 048
  3. EXCEDRIN [Concomitant]
  4. TOPROL XL [Concomitant]
     Dosage: 25 mg, QD
  5. COUMADIN [Concomitant]
     Dosage: 5 mg, QD
  6. LIPITOR [Concomitant]
     Dosage: 10 mg, QD

REACTIONS (5)
  - Cerebrovascular accident [Recovering/Resolving]
  - Cerebral infarction [Recovering/Resolving]
  - Hemiparesis [Recovering/Resolving]
  - Paraesthesia [Recovering/Resolving]
  - Disease progression [Recovering/Resolving]
